FAERS Safety Report 10236293 (Version 1)
Quarter: 2014Q2

REPORT INFORMATION
  Report Type: Spontaneous
  Country: CA (occurrence: CA)
  Receive Date: 20140613
  Receipt Date: 20140613
  Transmission Date: 20141212
  Serious: Yes (Hospitalization)
  Sender: FDA-Public Use
  Company Number: CA-PFIZER INC-2014155960

PATIENT
  Age: 59 Year
  Sex: Female

DRUGS (8)
  1. LIPITOR [Suspect]
     Indication: INTESTINAL ISCHAEMIA
     Dosage: 10 MG, SINGLE
     Dates: start: 20140528, end: 20140528
  2. RITALIN [Concomitant]
     Dosage: 5 MG, 2X/DAY (1 TAB IN AM, 1 TAB AT NOON)
  3. CYMBALTA [Concomitant]
     Dosage: 120 MG, DAILY (60MG 2 TAB IN AM)
  4. RIVOTRIL [Concomitant]
     Dosage: 0.5 MG (1 TAB IN AM AND 2 TAB AT BEDTIME)
  5. SENNOKOTT [Concomitant]
     Dosage: 2 TABS OF 8.8 MG AS NEEDED
  6. SYNTHROID [Concomitant]
     Indication: THYROID DISORDER
     Dosage: 0.088 MG, UNK
  7. BETA ESTRADIOL [Concomitant]
     Indication: MENIERE^S DISEASE
     Dosage: 16 MG, 1 TAB IN AM, 1 TAB AT SUPPER
  8. VITAMIN B12 [Concomitant]
     Indication: PERNICIOUS ANAEMIA
     Dosage: 1 ML, MONTHLY

REACTIONS (12)
  - Wheezing [Recovered/Resolved]
  - Dysphagia [Recovered/Resolved]
  - Swollen tongue [Recovered/Resolved]
  - Confusional state [Recovered/Resolved]
  - Pain [Recovered/Resolved]
  - Back pain [Recovered/Resolved]
  - Speech disorder [Recovered/Resolved]
  - Dysphonia [Recovered/Resolved]
  - Musculoskeletal stiffness [Recovered/Resolved]
  - Muscular weakness [Recovered/Resolved]
  - Condition aggravated [Not Recovered/Not Resolved]
  - Off label use [Unknown]
